FAERS Safety Report 18152725 (Version 2)
Quarter: 2020Q3

REPORT INFORMATION
  Report Type: Report from Study
  Country: None (occurrence: US)
  Receive Date: 20200815
  Receipt Date: 20200901
  Transmission Date: 20201103
  Serious: Yes (Hospitalization, Other)
  Sender: FDA-Public Use
  Company Number: US-ABBVIE-20K-163-3481190-00

PATIENT
  Sex: Male

DRUGS (3)
  1. IMBRUVICA [Suspect]
     Active Substance: IBRUTINIB
     Indication: CHRONIC LYMPHOCYTIC LEUKAEMIA
     Route: 048
     Dates: start: 201603
  2. IMBRUVICA [Suspect]
     Active Substance: IBRUTINIB
     Indication: CHRONIC LYMPHOCYTIC LEUKAEMIA
     Route: 048
     Dates: start: 201603
  3. IMBRUVICA [Suspect]
     Active Substance: IBRUTINIB
     Route: 048

REACTIONS (15)
  - Pain [Unknown]
  - Metastatic neoplasm [Unknown]
  - Arthropod bite [Unknown]
  - Obstruction [Unknown]
  - Penile curvature [Unknown]
  - Prostatomegaly [Unknown]
  - Laboratory test abnormal [Unknown]
  - Platelet transfusion [Unknown]
  - Bone pain [Unknown]
  - Pyuria [Unknown]
  - Hypoaesthesia [Unknown]
  - Prostatic operation [Recovered/Resolved]
  - Blood urine present [Unknown]
  - Chest pain [Unknown]
  - Pain in extremity [Unknown]
